FAERS Safety Report 7569761-7 (Version None)
Quarter: 2011Q2

REPORT INFORMATION
  Report Type: 
  Country: None (occurrence: None)
  Receive Date: 20110624
  Receipt Date: 20110613
  Transmission Date: 20111010
  Serious: Yes (Other)
  Sender: FDA-Public Use
  Company Number: US-JNJFOC-20110606055

PATIENT
  Age: 22 Year
  Sex: Male

DRUGS (3)
  1. REMICADE [Suspect]
     Dosage: 2ND INDUCTION DOSE
     Route: 042
     Dates: start: 20110601
  2. REMICADE [Suspect]
     Indication: CROHN'S DISEASE
     Route: 042
     Dates: start: 20110101
  3. REMICADE [Suspect]
     Route: 042
     Dates: start: 20010101

REACTIONS (2)
  - DYSTONIA [None]
  - INFUSION RELATED REACTION [None]
